FAERS Safety Report 5949426-5 (Version None)
Quarter: 2008Q4

REPORT INFORMATION
  Report Type: 
  Country: None (occurrence: None)
  Receive Date: 20081112
  Receipt Date: 20081031
  Transmission Date: 20090506
  Serious: Yes (Hospitalization, Other)
  Sender: FDA-Public Use
  Company Number: PHHY2008MX26842

PATIENT
  Age: 86 Year
  Sex: Female

DRUGS (2)
  1. ACLASTA [Suspect]
     Indication: OSTEOPOROSIS
     Dosage: 5 MG/100 ML
     Dates: start: 20070901
  2. ALINDEPOT (DEXAMETHASONE) [Concomitant]

REACTIONS (2)
  - LEG AMPUTATION [None]
  - OEDEMA PERIPHERAL [None]
